FAERS Safety Report 25290599 (Version 1)
Quarter: 2025Q2

REPORT INFORMATION
  Report Type: Spontaneous
  Country: US (occurrence: US)
  Receive Date: 20250510
  Receipt Date: 20250510
  Transmission Date: 20250717
  Serious: No
  Sender: INNOGENIX, LLC
  Company Number: US-Innogenix, LLC-2176511

PATIENT

DRUGS (2)
  1. BACLOFEN [Suspect]
     Active Substance: BACLOFEN
     Indication: Clonus
  2. BACLOFEN [Suspect]
     Active Substance: BACLOFEN
     Indication: Hyperreflexia

REACTIONS (1)
  - Drug ineffective for unapproved indication [Unknown]
